FAERS Safety Report 9621166 (Version 1)
Quarter: 2013Q4

REPORT INFORMATION
  Report Type: Spontaneous
  Country: US (occurrence: US)
  Receive Date: 20131015
  Receipt Date: 20131015
  Transmission Date: 20140711
  Serious: No
  Sender: FDA-Public Use
  Company Number: US-BAYER-2013-124064

PATIENT
  Age: 54 Year
  Sex: Female

DRUGS (1)
  1. GADAVIST [Suspect]
     Dosage: 8-9 CC^S OF A 10 CC VIAL, ONCE

REACTIONS (1)
  - Urticaria [Recovering/Resolving]
